FAERS Safety Report 19715537 (Version 1)
Quarter: 2021Q3

REPORT INFORMATION
  Report Type: Spontaneous
  Country: DE (occurrence: DE)
  Receive Date: 20210818
  Receipt Date: 20210818
  Transmission Date: 20211014
  Serious: Yes (Hospitalization, Other)
  Sender: FDA-Public Use
  Company Number: DE-SA-2021SA272394

PATIENT
  Sex: Male

DRUGS (1)
  1. DUPIXENT [Suspect]
     Active Substance: DUPILUMAB
     Indication: ASTHMA
     Dosage: UNK MG

REACTIONS (8)
  - Hypertension [Unknown]
  - Dyspnoea [Unknown]
  - Asthma [Unknown]
  - Cough [Recovering/Resolving]
  - Hot flush [Unknown]
  - Sleep disorder [Unknown]
  - Dizziness [Unknown]
  - Near death experience [Unknown]

NARRATIVE: CASE EVENT DATE: 202106
